FAERS Safety Report 5199045-6 (Version None)
Quarter: 2006Q4

REPORT INFORMATION
  Report Type: 
  Country: None (occurrence: None)
  Receive Date: 20060919
  Receipt Date: 20051114
  Transmission Date: 20070319
  Serious: Yes (Other)
  Sender: FDA-Public Use
  Company Number: HQWYE647218NOV05

PATIENT
  Age: 71 Year
  Sex: Female
  Weight: 68.1 kg

DRUGS (5)
  1. ADVIL [Suspect]
     Indication: MUSCULOSKELETAL PAIN
     Dosage: 2 LIQUI-GELS AS NEEDED, UP TO THREE TIMES PER DAY, ORAL
     Route: 048
     Dates: start: 20050101
  2. ADVIL [Suspect]
     Indication: TOOTHACHE
     Dosage: 2 LIQUI-GELS AS NEEDED, UP TO THREE TIMES PER DAY, ORAL
     Route: 048
     Dates: start: 20050101
  3. HYDROCHLOROTHIAZIDE [Concomitant]
  4. CLINDAMYCIN (CLINDAMYCIN ) [Concomitant]
  5. ALTACE [Concomitant]

REACTIONS (3)
  - CONDITION AGGRAVATED [None]
  - DIZZINESS [None]
  - HYPERTENSION [None]
